FAERS Safety Report 7720619-X (Version None)
Quarter: 2011Q3

REPORT INFORMATION
  Report Type: 
  Country: None (occurrence: None)
  Receive Date: 20110831
  Receipt Date: 20110816
  Transmission Date: 20111222
  Serious: Yes (Other)
  Sender: FDA-Public Use
  Company Number: PHHY2011AU73711

PATIENT
  Sex: Female

DRUGS (1)
  1. EXFORGE [Suspect]
     Dosage: 5 MG AMLODIPINE/ 160 MG VALSARTAN
     Dates: end: 20110807

REACTIONS (3)
  - EYE PAIN [None]
  - PHOTOPHOBIA [None]
  - HEADACHE [None]
